FAERS Safety Report 20708588 (Version 2)
Quarter: 2022Q2

REPORT INFORMATION
  Report Type: Spontaneous
  Country: GR (occurrence: None)
  Receive Date: 20220414
  Receipt Date: 20220428
  Transmission Date: 20220721
  Serious: Yes (Other)
  Sender: FDA-Public Use
  Company Number: GR-ROCHE-3068370

PATIENT
  Age: 57 Year
  Sex: Female

DRUGS (1)
  1. OCREVUS [Suspect]
     Active Substance: OCRELIZUMAB
     Indication: Multiple sclerosis
     Dosage: RECEIVE ANOTHER DOSE ON 05/SEP/2020.?SHE RECEIVED THE SECOND DOSE OF OCRELIZUMAB ON 20/FEB/2020
     Route: 065
     Dates: start: 20190822

REACTIONS (4)
  - Urinary tract infection [Unknown]
  - Intervertebral discitis [Unknown]
  - COVID-19 [Unknown]
  - Pain [Unknown]
